FAERS Safety Report 4914108-5 (Version None)
Quarter: 2006Q1

REPORT INFORMATION
  Report Type: 
  Country: None (occurrence: None)
  Receive Date: 20060216
  Receipt Date: 20060208
  Transmission Date: 20060701
  Serious: Yes (Death, Hospitalization)
  Sender: FDA-Public Use
  Company Number: US-KINGPHARMUSA00001-K200600172

PATIENT
  Sex: Female

DRUGS (10)
  1. ALTACE [Suspect]
  2. PREDNISOLONE [Suspect]
  3. SPIRIVA [Suspect]
     Indication: CHRONIC OBSTRUCTIVE PULMONARY DISEASE
     Dosage: 18 UG, QD
  4. VENTOLIN [Suspect]
     Dosage: 2.5 MG, QD
  5. FLIXOTIDE ^ALLEN + HANBURYS^ [Suspect]
  6. CLOTRIMAZOLE [Suspect]
  7. ASPIRIN [Suspect]
     Dosage: 75 MG, QD
  8. CALCICHEW D3 [Suspect]
  9. GAVISCON [Suspect]
  10. PANTOPRAZOLE [Suspect]

REACTIONS (3)
  - CARDIAC FAILURE [None]
  - PANCREATITIS ACUTE [None]
  - PERITONITIS [None]
